FAERS Safety Report 7421179-3 (Version None)
Quarter: 2011Q2

REPORT INFORMATION
  Report Type: 
  Country: None (occurrence: None)
  Receive Date: 20110408
  Receipt Date: 20110330
  Transmission Date: 20111010
  Serious: Yes (Other)
  Sender: FDA-Public Use
  Company Number: 2011SP014649

PATIENT
  Age: 63 Year
  Sex: Female
  Weight: 90 kg

DRUGS (1)
  1. ORMIGREIN (ORMIGREIN / 01755201/ ) [Suspect]
     Indication: MIGRAINE
     Dosage: ; PO
     Route: 048
     Dates: start: 19990101

REACTIONS (2)
  - DRUG DEPENDENCE [None]
  - DRUG EFFECT DECREASED [None]
